FAERS Safety Report 5771489-0 (Version None)
Quarter: 2008Q2

REPORT INFORMATION
  Report Type: 
  Country: None (occurrence: None)
  Receive Date: 20080611
  Receipt Date: 20080602
  Transmission Date: 20081010
  Serious: Yes (Hospitalization)
  Sender: FDA-Public Use
  Company Number: 2007-03928

PATIENT
  Age: 46 Year
  Sex: Female
  Weight: 62 kg

DRUGS (8)
  1. VELCADE [Suspect]
     Indication: MULTIPLE MYELOMA
     Dosage: 9.04 MG,
     Dates: start: 20070219, end: 20070310
  2. VELCADE [Suspect]
     Indication: MULTIPLE MYELOMA
     Dosage: 9.04 MG,
     Dates: start: 20070320, end: 20070407
  3. VELCADE [Suspect]
     Indication: MULTIPLE MYELOMA
     Dosage: 9.04 MG,
     Dates: start: 20070425, end: 20070514
  4. MELPHALAN(MELPHALAN) VIAL [Suspect]
     Indication: MULTIPLE MYELOMA
     Dosage: 100.00 MG, INTRAVENOUS
     Route: 042
     Dates: start: 20071026, end: 20071027
  5. CIPROFLOXACIN [Concomitant]
  6. DOXORUBICIN HCL [Suspect]
     Indication: MULTIPLE MYELOMA
     Dates: start: 20070219, end: 20070514
  7. DEXAMETHASONE TAB [Suspect]
     Indication: MULTIPLE MYELOMA
     Dates: start: 20070219, end: 20070514
  8. CYCLOPHOSPHAMIDE [Suspect]
     Indication: MULTIPLE MYELOMA

REACTIONS (6)
  - CLOSTRIDIUM DIFFICILE COLITIS [None]
  - GASTROENTERITIS CLOSTRIDIAL [None]
  - MUCOSAL INFLAMMATION [None]
  - PSEUDOMEMBRANOUS COLITIS [None]
  - STAPHYLOCOCCAL SEPSIS [None]
  - STOMATITIS [None]
